FAERS Safety Report 12928516 (Version 2)
Quarter: 2016Q4

REPORT INFORMATION
  Report Type: Spontaneous
  Country: TR (occurrence: TR)
  Receive Date: 20161110
  Receipt Date: 20161129
  Transmission Date: 20170207
  Serious: Yes (Death)
  Sender: FDA-Public Use
  Company Number: TR-BIOGEN-2016BI00315729

PATIENT

DRUGS (1)
  1. AVONEX [Suspect]
     Active Substance: INTERFERON BETA-1A
     Indication: MATERNAL EXPOSURE TIMING UNSPECIFIED
     Route: 064
     Dates: start: 20130314, end: 20160909

REACTIONS (2)
  - Foetal exposure timing unspecified [Unknown]
  - Foetal heart rate abnormal [Fatal]

NARRATIVE: CASE EVENT DATE: 20160926
